FAERS Safety Report 6051422-7 (Version None)
Quarter: 2009Q1

REPORT INFORMATION
  Report Type: 
  Country: None (occurrence: None)
  Receive Date: 20090126
  Receipt Date: 20090115
  Transmission Date: 20090719
  Serious: Yes (Other)
  Sender: FDA-Public Use
  Company Number: US-BAYER-200911578GPV

PATIENT
  Age: 16 Year
  Sex: Male

DRUGS (1)
  1. HELIXATE FS [Suspect]
     Indication: FACTOR VIII DEFICIENCY
     Route: 042

REACTIONS (1)
  - DRUG INEFFECTIVE [None]
